FAERS Safety Report 6599960-2 (Version None)
Quarter: 2010Q1

REPORT INFORMATION
  Report Type: 
  Country: None (occurrence: None)
  Receive Date: 20100217
  Receipt Date: 20100202
  Transmission Date: 20100710
  Serious: Yes (Hospitalization)
  Sender: FDA-Public Use
  Company Number: 008714

PATIENT
  Age: 82 Year
  Sex: Male

DRUGS (3)
  1. CILOSTAZOL [Suspect]
     Indication: INTERMITTENT CLAUDICATION
     Dosage: 200 MG, DAILY DOSE; ORAL
     Route: 048
     Dates: start: 20091201, end: 20100101
  2. OMEPRAZOLE [Concomitant]
  3. TELMISARTAN [Concomitant]

REACTIONS (1)
  - CARDIOGENIC SHOCK [None]
